FAERS Safety Report 19647098 (Version 1)
Quarter: 2021Q3

REPORT INFORMATION
  Report Type: Spontaneous
  Country: FR (occurrence: FR)
  Receive Date: 20210802
  Receipt Date: 20210802
  Transmission Date: 20211014
  Serious: Yes (Death)
  Sender: FDA-Public Use
  Company Number: FR-TEVA-2021-FR-1937423

PATIENT
  Age: 64 Year
  Sex: Female

DRUGS (5)
  1. NORDAZEPAM [Suspect]
     Active Substance: NORDAZEPAM
     Dosage: UNSPECIFIED
     Dates: start: 2021, end: 2021
  2. OXAZEPAM. [Suspect]
     Active Substance: OXAZEPAM
     Dosage: UNSPECIFIED
     Dates: start: 2021, end: 2021
  3. CHLORHYDRATE DE PAROXETINE ANHYDRE [Suspect]
     Active Substance: PAROXETINE
     Dosage: UNSPECIFIED
     Route: 065
     Dates: start: 2021, end: 2021
  4. PRAZEPAM [Suspect]
     Active Substance: PRAZEPAM
     Dosage: UNSPECIFIED
     Route: 065
     Dates: start: 2021, end: 2021
  5. OXYCODONE [Suspect]
     Active Substance: OXYCODONE
     Dosage: UNSPECIFIED
     Route: 065
     Dates: start: 2021, end: 2021

REACTIONS (2)
  - Respiratory depression [Fatal]
  - Drug abuse [Fatal]

NARRATIVE: CASE EVENT DATE: 2021
